FAERS Safety Report 11212697 (Version 2)
Quarter: 2015Q2

REPORT INFORMATION
  Report Type: Spontaneous
  Country: US (occurrence: US)
  Receive Date: 20150623
  Receipt Date: 20150625
  Transmission Date: 20150821
  Serious: No
  Sender: FDA-Public Use
  Company Number: US-HORIZON-ACT-0099-2015

PATIENT
  Age: 68 Year
  Sex: Male

DRUGS (4)
  1. INTERFERON ALFA NOS [Concomitant]
     Active Substance: INTERFERON ALFA-2A OR INTERFERON ALFA-2B
  2. TARGRETIN [Concomitant]
     Active Substance: BEXAROTENE
     Indication: BLOOD CHOLESTEROL ABNORMAL
  3. PROZAC [Concomitant]
     Active Substance: FLUOXETINE HYDROCHLORIDE
  4. ACTIMMUNE [Suspect]
     Active Substance: INTERFERON GAMMA-1B
     Indication: CHRONIC GRANULOMATOUS DISEASE

REACTIONS (1)
  - Arthralgia [Recovered/Resolved]

NARRATIVE: CASE EVENT DATE: 20150602
